FAERS Safety Report 9805458 (Version 1)
Quarter: 2014Q1

REPORT INFORMATION
  Report Type: Spontaneous
  Country: US (occurrence: None)
  Receive Date: 20140108
  Receipt Date: 20140108
  Transmission Date: 20141002
  Serious: Yes (Disabling)
  Sender: FDA-Public Use
  Company Number: None

PATIENT
  Age: 32 Year
  Sex: Female
  Weight: 80.74 kg

DRUGS (1)
  1. CIPRO [Suspect]
     Route: 048
     Dates: start: 20031101, end: 20120320

REACTIONS (5)
  - Tendon pain [None]
  - Arthralgia [None]
  - Neuralgia [None]
  - Neuropathy peripheral [None]
  - Depression [None]
